FAERS Safety Report 17782744 (Version 5)
Quarter: 2021Q4

REPORT INFORMATION
  Report Type: Report from Study
  Country: US (occurrence: US)
  Receive Date: 20200514
  Receipt Date: 20211228
  Transmission Date: 20220303
  Serious: Yes (Other)
  Sender: FDA-Public Use
  Company Number: US-SHIRE-US202016269

PATIENT
  Sex: Male
  Weight: 100 kg

DRUGS (13)
  1. LANADELUMAB [Suspect]
     Active Substance: LANADELUMAB
     Indication: Hereditary angioedema
     Dosage: 300 MILLIGRAM, Q2WEEKS
     Route: 058
     Dates: start: 20190701
  2. LANADELUMAB [Suspect]
     Active Substance: LANADELUMAB
     Indication: Immune system disorder
     Dosage: 300 MILLIGRAM, Q2WEEKS
     Route: 058
     Dates: start: 20200726
  3. FIRAZYR [Suspect]
     Active Substance: ICATIBANT ACETATE
     Indication: Hereditary angioedema
     Dosage: 30 MILLIGRAM
     Route: 058
     Dates: start: 20141103
  4. FIRAZYR [Suspect]
     Active Substance: ICATIBANT ACETATE
     Indication: Hereditary angioedema
     Dosage: 30 MILLIGRAM
     Route: 058
     Dates: start: 20141103
  5. FIRAZYR [Suspect]
     Active Substance: ICATIBANT ACETATE
     Indication: Immune system disorder
     Dosage: 30 MILLIGRAM
     Route: 058
     Dates: start: 20141007
  6. FIRAZYR [Suspect]
     Active Substance: ICATIBANT ACETATE
     Indication: Immune system disorder
     Dosage: 30 MILLIGRAM
     Route: 058
     Dates: start: 20141007
  7. ATENOLOL [Concomitant]
     Active Substance: ATENOLOL
  8. CLONAZEPAM [Concomitant]
     Active Substance: CLONAZEPAM
  9. VITAMIN C [Concomitant]
     Active Substance: ASCORBIC ACID
  10. LORATADINE [Concomitant]
     Active Substance: LORATADINE
  11. OMEPRAZOLE\SODIUM BICARBONATE [Concomitant]
     Active Substance: OMEPRAZOLE\SODIUM BICARBONATE
  12. DICYCLOMINE [Concomitant]
     Active Substance: DICYCLOMINE HYDROCHLORIDE
  13. VITAMINS [Concomitant]
     Active Substance: VITAMINS

REACTIONS (3)
  - Atrial fibrillation [Unknown]
  - Malignant melanoma [Unknown]
  - Hereditary angioedema [Recovered/Resolved]
